FAERS Safety Report 17400883 (Version 1)
Quarter: 2020Q1

REPORT INFORMATION
  Report Type: Spontaneous
  Country: US (occurrence: US)
  Receive Date: 20200211
  Receipt Date: 20200211
  Transmission Date: 20200409
  Serious: No
  Sender: FDA-Public Use
  Company Number: US-ACCORD-154029

PATIENT
  Sex: Male
  Weight: 94.8 kg

DRUGS (1)
  1. BUSPIRONE [Suspect]
     Active Substance: BUSPIRONE HYDROCHLORIDE
     Indication: ANXIETY
     Dosage: TWICE A DAY
     Route: 048
     Dates: start: 20190507, end: 201907

REACTIONS (1)
  - Tinnitus [Not Recovered/Not Resolved]
